FAERS Safety Report 7677312-1 (Version None)
Quarter: 2011Q3

REPORT INFORMATION
  Report Type: 
  Country: None (occurrence: None)
  Receive Date: 20110811
  Receipt Date: 20110808
  Transmission Date: 20111222
  Serious: Yes (Hospitalization, Other)
  Sender: FDA-Public Use
  Company Number: JP-B.I. PHARMACEUTICALS,INC./RIDGEFIELD-2011-BP-19370NB

PATIENT
  Age: 85 Year
  Sex: Female

DRUGS (5)
  1. EXFORGE [Concomitant]
     Route: 048
  2. MAOREAD [Concomitant]
     Route: 048
  3. PRADAXA [Suspect]
     Dosage: 220 MG
     Route: 048
     Dates: start: 20110706
  4. CARVEDILOL [Concomitant]
     Route: 048
  5. YOULACTONE [Concomitant]
     Route: 048

REACTIONS (2)
  - BRAIN NEOPLASM [None]
  - CEREBRAL HAEMORRHAGE [None]
